FAERS Safety Report 25151678 (Version 3)
Quarter: 2025Q2

REPORT INFORMATION
  Report Type: Spontaneous
  Country: CN (occurrence: CN)
  Receive Date: 20250402
  Receipt Date: 20250417
  Transmission Date: 20250717
  Serious: Yes (Hospitalization, Other)
  Sender: MERCK SHARP AND DOHME
  Company Number: CN-009507513-2270793

PATIENT
  Age: 60 Year
  Sex: Female
  Weight: 52 kg

DRUGS (2)
  1. KEYTRUDA [Suspect]
     Active Substance: PEMBROLIZUMAB
     Indication: Gastric cancer
     Route: 042
     Dates: start: 20250306, end: 20250306
  2. CAPECITABINE [Suspect]
     Active Substance: CAPECITABINE
     Indication: Gastric cancer
     Route: 048
     Dates: start: 20250307, end: 20250320

REACTIONS (4)
  - White blood cell count decreased [Recovering/Resolving]
  - Neutropenia [Recovering/Resolving]
  - Myelosuppression [Unknown]
  - Product use issue [Unknown]

NARRATIVE: CASE EVENT DATE: 20250329
